FAERS Safety Report 14559033 (Version 1)
Quarter: 2018Q1

REPORT INFORMATION
  Report Type: Spontaneous
  Country: US (occurrence: US)
  Receive Date: 20180221
  Receipt Date: 20180221
  Transmission Date: 20180509
  Serious: No
  Sender: FDA-Public Use
  Company Number: US-ELI_LILLY_AND_COMPANY-US201801012177

PATIENT
  Age: 61 Year
  Sex: Female

DRUGS (6)
  1. BASAGLAR [Suspect]
     Active Substance: INSULIN GLARGINE
     Indication: TYPE 1 DIABETES MELLITUS
     Dosage: 5 U, EACH MORNING
     Route: 058
     Dates: start: 201701
  2. BASAGLAR [Suspect]
     Active Substance: INSULIN GLARGINE
     Dosage: 8 U, DAILY AT NIGHT
     Route: 058
  3. HUMALOG [Suspect]
     Active Substance: INSULIN LISPRO
     Indication: TYPE 1 DIABETES MELLITUS
     Dosage: UNK, DAILY WITH MEALS
     Route: 058
     Dates: start: 201701
  4. BASAGLAR [Suspect]
     Active Substance: INSULIN GLARGINE
     Dosage: 5 U, EACH MORNING
     Route: 058
  5. BASAGLAR [Suspect]
     Active Substance: INSULIN GLARGINE
     Dosage: 8 U, DAILY AT NIGHT
     Route: 058
     Dates: start: 201701
  6. HUMALOG [Suspect]
     Active Substance: INSULIN LISPRO
     Dosage: UNK, DAILY WITH MEALS
     Route: 058

REACTIONS (4)
  - Underdose [Recovered/Resolved]
  - Underdose [Recovered/Resolved]
  - Blood glucose increased [Recovered/Resolved]
  - Product storage error [Unknown]

NARRATIVE: CASE EVENT DATE: 20180123
